FAERS Safety Report 18385856 (Version 1)
Quarter: 2020Q4

REPORT INFORMATION
  Report Type: Spontaneous
  Country: IT (occurrence: IT)
  Receive Date: 20201015
  Receipt Date: 20201015
  Transmission Date: 20210114
  Serious: Yes (Life-Threatening, Hospitalization)
  Sender: FDA-Public Use
  Company Number: IT-TEVA-2020-IT-1837400

PATIENT
  Age: 49 Year
  Sex: Female

DRUGS (9)
  1. VASOPRESSIN. [Suspect]
     Active Substance: VASOPRESSIN
     Indication: CARDIOGENIC SHOCK
     Dosage: VASOPRESSIN 3 UI/H [INITIAL DOSAGE NOT STATED]
     Route: 065
  2. VALPROIC ACID. [Concomitant]
     Active Substance: VALPROIC ACID
     Indication: SEIZURE
     Route: 065
  3. QUETIAPINE. [Suspect]
     Active Substance: QUETIAPINE
     Indication: PRODUCT USED FOR UNKNOWN INDICATION
     Route: 065
  4. UNFRACTIONATED SODIUM HEPARIN [Concomitant]
     Indication: ANTICOAGULANT THERAPY
     Dosage: AS NEEDED
     Route: 065
  5. TRAMADOL. [Suspect]
     Active Substance: TRAMADOL
     Indication: INTENTIONAL OVERDOSE
     Route: 065
  6. NOREPINEPHRINE. [Suspect]
     Active Substance: NOREPINEPHRINE
     Indication: CARDIOGENIC SHOCK
     Dosage: INITIAL DOSAGE NOT STATED
     Route: 065
  7. PREGABALIN. [Concomitant]
     Active Substance: PREGABALIN
     Indication: SEIZURE
     Route: 065
  8. EPINEPHRINE. [Suspect]
     Active Substance: EPINEPHRINE
     Indication: CARDIOGENIC SHOCK
     Dosage: INITIAL DOSAGE NOT STATED
     Route: 065
  9. NALOXONE [Suspect]
     Active Substance: NALOXONE
     Indication: TOXICITY TO VARIOUS AGENTS
     Route: 050

REACTIONS (14)
  - Mitral valve incompetence [Recovering/Resolving]
  - Acute kidney injury [Recovering/Resolving]
  - Multiple organ dysfunction syndrome [Recovering/Resolving]
  - Pupillary light reflex tests abnormal [Recovering/Resolving]
  - Left ventricular dilatation [Recovering/Resolving]
  - Intentional overdose [Recovering/Resolving]
  - Loss of consciousness [Recovered/Resolved]
  - Hepatic failure [Recovering/Resolving]
  - Drug ineffective [Unknown]
  - Toxicity to various agents [Recovering/Resolving]
  - Mydriasis [Recovering/Resolving]
  - Acidosis [Recovering/Resolving]
  - Metabolic encephalopathy [Recovering/Resolving]
  - Cardiogenic shock [Recovering/Resolving]
